FAERS Safety Report 17295180 (Version 1)
Quarter: 2020Q1

REPORT INFORMATION
  Report Type: Spontaneous
  Country: ES (occurrence: ES)
  Receive Date: 20200121
  Receipt Date: 20200121
  Transmission Date: 20200409
  Serious: Yes (Other)
  Sender: FDA-Public Use
  Company Number: ES-ROCHE-2504363

PATIENT
  Age: 41 Year
  Sex: Female
  Weight: 55 kg

DRUGS (9)
  1. HERCEPTIN [Suspect]
     Active Substance: TRASTUZUMAB
     Route: 065
     Dates: start: 201105
  2. XELODA [Suspect]
     Active Substance: CAPECITABINE
     Indication: INVASIVE DUCTAL BREAST CARCINOMA
     Route: 048
  3. ZOLADEX [Suspect]
     Active Substance: GOSERELIN ACETATE
     Indication: INVASIVE DUCTAL BREAST CARCINOMA
     Route: 065
  4. CYCLOPHOSPHAMIDE. [Concomitant]
     Active Substance: CYCLOPHOSPHAMIDE
  5. HERCEPTIN [Suspect]
     Active Substance: TRASTUZUMAB
     Indication: INVASIVE DUCTAL BREAST CARCINOMA
     Route: 065
  6. TAMOXIFEN [Suspect]
     Active Substance: TAMOXIFEN
     Indication: INVASIVE DUCTAL BREAST CARCINOMA
     Route: 065
  7. ZOMETA [Suspect]
     Active Substance: ZOLEDRONIC ACID
     Indication: INVASIVE DUCTAL BREAST CARCINOMA
     Route: 065
  8. DOCETAXEL. [Suspect]
     Active Substance: DOCETAXEL
     Indication: INVASIVE DUCTAL BREAST CARCINOMA
     Route: 065
  9. DOCETAXEL. [Suspect]
     Active Substance: DOCETAXEL
     Route: 065
     Dates: start: 201105

REACTIONS (5)
  - Drug intolerance [Unknown]
  - Breast neoplasm [Unknown]
  - Metastases to central nervous system [Unknown]
  - Musculoskeletal stiffness [Unknown]
  - Headache [Unknown]

NARRATIVE: CASE EVENT DATE: 201202
